FAERS Safety Report 19036981 (Version 1)
Quarter: 2021Q1

REPORT INFORMATION
  Report Type: Spontaneous
  Country: US (occurrence: US)
  Receive Date: 20210322
  Receipt Date: 20210322
  Transmission Date: 20210420
  Serious: No
  Sender: FDA-Public Use
  Company Number: None

PATIENT
  Sex: Female

DRUGS (1)
  1. HUMIRA [Suspect]
     Active Substance: ADALIMUMAB
     Indication: COLITIS ULCERATIVE
     Dosage: ?          OTHER FREQUENCY:EVERY14DAYS ;?
     Route: 042
     Dates: start: 20200828

REACTIONS (4)
  - Drug ineffective [None]
  - Haemorrhage [None]
  - Defaecation urgency [None]
  - Mucous stools [None]
